FAERS Safety Report 17742572 (Version 4)
Quarter: 2020Q2

REPORT INFORMATION
  Report Type: Spontaneous
  Country: DE (occurrence: DE)
  Receive Date: 20200505
  Receipt Date: 20200511
  Transmission Date: 20200714
  Serious: Yes (Other)
  Sender: FDA-Public Use
  Company Number: DE-ALK-ABELLO A/S-2020AA001010

PATIENT

DRUGS (2)
  1. ACARIZAX [Suspect]
     Active Substance: DERMATOPHAGOIDES FARINAE\DERMATOPHAGOIDES PTERONYSSINUS
     Indication: MITE ALLERGY
     Dosage: 12 SQ-HDM, QD
     Route: 060
     Dates: start: 20200130, end: 20200313
  2. L-THYROXIN [Concomitant]
     Active Substance: LEVOTHYROXINE SODIUM
     Indication: HYPOTHYROIDISM
     Dosage: 1 TAB, QD
     Route: 048

REACTIONS (8)
  - Swelling face [Recovered/Resolved]
  - Lip swelling [Unknown]
  - Abdominal pain upper [Recovered/Resolved]
  - Gingival swelling [Unknown]
  - Vomiting [Recovered/Resolved]
  - Product administered at inappropriate site [Unknown]
  - Off label use [Unknown]
  - Conjunctivitis [Recovered/Resolved]

NARRATIVE: CASE EVENT DATE: 202002
